FAERS Safety Report 8066806-5 (Version None)
Quarter: 2012Q1

REPORT INFORMATION
  Report Type: 
  Country: None (occurrence: None)
  Receive Date: 20120124
  Receipt Date: 20120118
  Transmission Date: 20120608
  Serious: Yes (Other)
  Sender: FDA-Public Use
  Company Number: PHEH2012US001706

PATIENT
  Sex: Female

DRUGS (6)
  1. AFINITOR [Suspect]
     Indication: TUBEROUS SCLEROSIS
     Dosage: 2.5 MG, DAILY
     Route: 048
     Dates: start: 20110317
  2. AMIODARONE HCL [Concomitant]
  3. AFINITOR [Suspect]
     Indication: ASTROCYTOMA
  4. KEPPRA [Concomitant]
  5. FLECAINIDE ACETATE [Concomitant]
  6. SABRIL [Concomitant]

REACTIONS (2)
  - CONCOMITANT DISEASE AGGRAVATED [None]
  - ARRHYTHMIA [None]
